FAERS Safety Report 21997171 (Version 3)
Quarter: 2023Q1

REPORT INFORMATION
  Report Type: Report from Study
  Country: CA (occurrence: CA)
  Receive Date: 20230216
  Receipt Date: 20230306
  Transmission Date: 20230418
  Serious: Yes (Hospitalization)
  Sender: FDA-Public Use
  Company Number: CA-ABBVIE-4308557

PATIENT
  Sex: Female

DRUGS (2)
  1. RINVOQ [Suspect]
     Active Substance: UPADACITINIB
     Indication: Psoriatic arthropathy
     Dosage: FIRST ADMIN DATE: 28 JAN 2023, LAST ADMIN DATE: 14 FEB 2023
     Route: 048
  2. RINVOQ [Suspect]
     Active Substance: UPADACITINIB
     Indication: Psoriatic arthropathy
     Dosage: FIRST ADMIN DATE: FEB 2023
     Route: 048

REACTIONS (3)
  - Gastroenteritis [Recovering/Resolving]
  - Oropharyngeal pain [Unknown]
  - Appendicitis [Unknown]

NARRATIVE: CASE EVENT DATE: 20230101
